FAERS Safety Report 10235896 (Version 1)
Quarter: 2014Q2

REPORT INFORMATION
  Report Type: Spontaneous
  Country: BR (occurrence: None)
  Receive Date: 20140611
  Receipt Date: 20140611
  Transmission Date: 20141212
  Serious: Yes (Other)
  Sender: FDA-Public Use
  Company Number: 2014000182

PATIENT
  Age: 59 Year
  Sex: Female

DRUGS (3)
  1. ACEON [Suspect]
     Indication: HYPERTENSION
     Route: 048
     Dates: start: 20140528, end: 20140528
  2. VALSARTAN (VALSARTAN) [Concomitant]
  3. HYDROCHLOROTHIAZIDE (HYDROCHLOROTHIAZIDE) [Concomitant]

REACTIONS (3)
  - Erythema [None]
  - Tongue oedema [None]
  - Hyperaemia [None]
